FAERS Safety Report 16908226 (Version 1)
Quarter: 2019Q4

REPORT INFORMATION
  Report Type: Spontaneous
  Country: CN (occurrence: CN)
  Receive Date: 20191011
  Receipt Date: 20191011
  Transmission Date: 20200122
  Serious: Yes (Other)
  Sender: FDA-Public Use
  Company Number: CN-ROCHE-2426593

PATIENT
  Age: 54 Year
  Sex: Female

DRUGS (25)
  1. HERCEPTIN [Suspect]
     Active Substance: TRASTUZUMAB
     Dosage: ON DAY 1
     Route: 042
     Dates: start: 20180928
  2. HERCEPTIN [Suspect]
     Active Substance: TRASTUZUMAB
     Dosage: ON DAY 1
     Route: 041
     Dates: start: 20190214
  3. CAPECITABINE. [Suspect]
     Active Substance: CAPECITABINE
     Route: 048
     Dates: start: 20170726
  4. CAPECITABINE. [Suspect]
     Active Substance: CAPECITABINE
     Route: 048
     Dates: start: 20171018
  5. GEMCITABINE. [Concomitant]
     Active Substance: GEMCITABINE
     Indication: INVASIVE BREAST CARCINOMA
     Dosage: ON DAY 2 AND DAY 10
     Route: 041
     Dates: start: 20180928
  6. HERCEPTIN [Suspect]
     Active Substance: TRASTUZUMAB
     Route: 042
     Dates: start: 20160628
  7. HERCEPTIN [Suspect]
     Active Substance: TRASTUZUMAB
     Route: 042
     Dates: start: 20171018
  8. VINORELBINE [Concomitant]
     Active Substance: VINORELBINE TARTRATE
     Route: 065
     Dates: start: 20180504
  9. HERCEPTIN [Suspect]
     Active Substance: TRASTUZUMAB
     Indication: INVASIVE BREAST CARCINOMA
     Dosage: INITIAL: 260MG, THEN 130MG ON DAY 1
     Route: 042
     Dates: start: 20160128
  10. VINORELBINE [Concomitant]
     Active Substance: VINORELBINE TARTRATE
     Indication: INVASIVE BREAST CARCINOMA
     Dosage: ON DAY 2 AND DAY 9
     Route: 065
     Dates: start: 20160128
  11. VINORELBINE [Concomitant]
     Active Substance: VINORELBINE TARTRATE
     Route: 065
     Dates: start: 20170816
  12. VINORELBINE [Concomitant]
     Active Substance: VINORELBINE TARTRATE
     Route: 041
     Dates: start: 201804
  13. HERCEPTIN [Suspect]
     Active Substance: TRASTUZUMAB
     Route: 042
     Dates: start: 20170726
  14. HERCEPTIN [Suspect]
     Active Substance: TRASTUZUMAB
     Route: 042
     Dates: start: 201804
  15. HERCEPTIN [Suspect]
     Active Substance: TRASTUZUMAB
     Route: 042
     Dates: start: 20180504
  16. HERCEPTIN [Suspect]
     Active Substance: TRASTUZUMAB
     Dosage: ON DAY 1
     Route: 042
     Dates: start: 20190111
  17. CAPECITABINE. [Suspect]
     Active Substance: CAPECITABINE
     Route: 048
     Dates: start: 201804
  18. GEMCITABINE. [Concomitant]
     Active Substance: GEMCITABINE
     Dosage: ON DAY 2 AND DAY 9
     Route: 065
     Dates: start: 20190214
  19. HERCEPTIN [Suspect]
     Active Substance: TRASTUZUMAB
     Route: 042
     Dates: start: 20170816
  20. CAPECITABINE. [Suspect]
     Active Substance: CAPECITABINE
     Route: 048
     Dates: start: 2017
  21. CARBOPLATIN. [Concomitant]
     Active Substance: CARBOPLATIN
     Indication: INVASIVE BREAST CARCINOMA
     Dosage: ON DAY 2 AND DAY 9
     Route: 041
     Dates: start: 20190214
  22. VINORELBINE [Concomitant]
     Active Substance: VINORELBINE TARTRATE
     Dosage: ON DAY 2 AND DAY 8
     Route: 065
     Dates: start: 20170705
  23. HERCEPTIN [Suspect]
     Active Substance: TRASTUZUMAB
     Route: 042
     Dates: start: 20170705
  24. CAPECITABINE. [Suspect]
     Active Substance: CAPECITABINE
     Indication: INVASIVE BREAST CARCINOMA
     Route: 048
     Dates: start: 2017
  25. GEMCITABINE. [Concomitant]
     Active Substance: GEMCITABINE
     Dosage: ON DAY 2 AND DYA 9
     Route: 041
     Dates: start: 20190111

REACTIONS (6)
  - Tricuspid valve incompetence [Unknown]
  - Left ventricular dysfunction [Unknown]
  - Lymphangitis [Unknown]
  - Atelectasis [Unknown]
  - Pleural effusion [Unknown]
  - Pleural thickening [Unknown]

NARRATIVE: CASE EVENT DATE: 2017
